FAERS Safety Report 6444797-8 (Version None)
Quarter: 2009Q4

REPORT INFORMATION
  Report Type: 
  Country: None (occurrence: None)
  Receive Date: 20091118
  Receipt Date: 20091104
  Transmission Date: 20100525
  Serious: Yes (Hospitalization, Other)
  Sender: FDA-Public Use
  Company Number: PHMT2007CA01273

PATIENT
  Sex: Female
  Weight: 68.027 kg

DRUGS (4)
  1. SANDOSTATIN LAR [Suspect]
     Indication: CARCINOID TUMOUR
     Dosage: 30 MG, Q 3 WEEKS
     Route: 030
     Dates: start: 19991201
  2. CHEMOTHERAPEUTICS NOS [Suspect]
     Dates: start: 20070511
  3. POTASSIUM CHLORIDE [Suspect]
     Dosage: PILLS
     Route: 048
  4. RADIATION THERAPY [Concomitant]
     Dates: start: 20070511

REACTIONS (30)
  - ABDOMINAL PAIN [None]
  - APPLICATION SITE ERYTHEMA [None]
  - APPLICATION SITE SWELLING [None]
  - APPLICATION SITE WARMTH [None]
  - ASTHENIA [None]
  - BLOOD PRESSURE DECREASED [None]
  - BURNING SENSATION [None]
  - CAUSTIC INJURY [None]
  - CONSTIPATION [None]
  - DYSPNOEA [None]
  - FATIGUE [None]
  - FLUSHING [None]
  - HAEMOGLOBIN DECREASED [None]
  - HYPERHIDROSIS [None]
  - INFUSION SITE EXTRAVASATION [None]
  - INFUSION SITE PHLEBITIS [None]
  - INJECTION SITE HAEMATOMA [None]
  - INJECTION SITE PAIN [None]
  - INJECTION SITE REACTION [None]
  - JOINT SWELLING [None]
  - MALAISE [None]
  - MICTURITION URGENCY [None]
  - OEDEMA PERIPHERAL [None]
  - PALPITATIONS [None]
  - PLATELET COUNT DECREASED [None]
  - RASH MACULAR [None]
  - SWELLING [None]
  - THIRST [None]
  - WEIGHT INCREASED [None]
  - WHITE BLOOD CELL COUNT DECREASED [None]
